FAERS Safety Report 14329324 (Version 5)
Quarter: 2018Q1

REPORT INFORMATION
  Report Type: Spontaneous
  Country: GR (occurrence: GR)
  Receive Date: 20171227
  Receipt Date: 20180212
  Transmission Date: 20180509
  Serious: Yes (Other)
  Sender: FDA-Public Use
  Company Number: GR-JNJFOC-20171232520

PATIENT
  Age: 60 Year
  Sex: Male

DRUGS (3)
  1. AZATHIOPRINE. [Suspect]
     Active Substance: AZATHIOPRINE
     Indication: PRODUCT USED FOR UNKNOWN INDICATION
     Route: 065
  2. REMICADE [Suspect]
     Active Substance: INFLIXIMAB
     Indication: COLITIS ULCERATIVE
     Route: 042
     Dates: start: 200212
  3. REMICADE [Suspect]
     Active Substance: INFLIXIMAB
     Indication: COLITIS ULCERATIVE
     Route: 042
     Dates: start: 20170921

REACTIONS (4)
  - Fistula [Recovering/Resolving]
  - Salmonellosis [Unknown]
  - Abscess [Recovering/Resolving]
  - C-reactive protein increased [Recovered/Resolved]

NARRATIVE: CASE EVENT DATE: 2015
